FAERS Safety Report 17995865 (Version 3)
Quarter: 2021Q1

REPORT INFORMATION
  Report Type: Spontaneous
  Country: US (occurrence: US)
  Receive Date: 20200708
  Receipt Date: 20210211
  Transmission Date: 20210419
  Serious: Yes (Death, Hospitalization)
  Sender: FDA-Public Use
  Company Number: US-IMMUNOMEDICS, INC.-2020IMMU000435

PATIENT
  Age: 67 Year
  Sex: Female
  Weight: 90.2 kg

DRUGS (4)
  1. TYLENOL [Concomitant]
     Active Substance: ACETAMINOPHEN
     Indication: PRODUCT USED FOR UNKNOWN INDICATION
     Dosage: 500 MG
     Route: 048
  2. TRODELVY [Suspect]
     Active Substance: SACITUZUMAB GOVITECAN-HZIY
     Dosage: 10 MG/KG DAY 1 AND 8 OF 21 DAY CYCLE
     Route: 042
     Dates: start: 20200610, end: 20200610
  3. TRODELVY [Suspect]
     Active Substance: SACITUZUMAB GOVITECAN-HZIY
     Indication: TRIPLE NEGATIVE BREAST CANCER
     Dosage: 75 % (720 MG) DAY 1 AND 8 OF 21 DAY CYCLE
     Route: 042
     Dates: start: 20200603, end: 20200603
  4. XARELTO [Concomitant]
     Active Substance: RIVAROXABAN
     Indication: PRODUCT USED FOR UNKNOWN INDICATION
     Dosage: 20 MG, 1 TABLET QD
     Route: 048

REACTIONS (6)
  - White blood cell count decreased [Unknown]
  - Septic shock [Fatal]
  - Febrile neutropenia [Unknown]
  - Encephalopathy [Unknown]
  - Urinary tract infection [Unknown]
  - Neutropenia [Unknown]

NARRATIVE: CASE EVENT DATE: 20200614
